FAERS Safety Report 10015338 (Version 1)
Quarter: 2014Q1

REPORT INFORMATION
  Report Type: Spontaneous
  Country: US (occurrence: US)
  Receive Date: 20140317
  Receipt Date: 20140317
  Transmission Date: 20141002
  Serious: No
  Sender: FDA-Public Use
  Company Number: US-PFIZER INC-2014075601

PATIENT
  Age: 47 Year
  Sex: Female
  Weight: 63.5 kg

DRUGS (3)
  1. EFFEXOR XR [Suspect]
     Dosage: 150 MG, 1X/DAY
     Route: 048
     Dates: end: 201401
  2. EFFEXOR XR [Suspect]
     Dosage: 0.5 DF (HALF OF VENLAFAXINE CAPSULE), UNK
     Route: 048
     Dates: start: 201401
  3. MUCINEX [Concomitant]
     Dosage: 600 MG, UNK

REACTIONS (2)
  - Middle insomnia [Not Recovered/Not Resolved]
  - Palpitations [Not Recovered/Not Resolved]
